FAERS Safety Report 4492791-9 (Version None)
Quarter: 2004Q4

REPORT INFORMATION
  Report Type: 
  Country: None (occurrence: None)
  Receive Date: 20041029
  Receipt Date: 20041020
  Transmission Date: 20050328
  Serious: Yes (Hospitalization)
  Sender: FDA-Public Use
  Company Number: 2004231351JP

PATIENT
  Age: 76 Year
  Sex: Male
  Weight: 55 kg

DRUGS (11)
  1. CABERGOLINE [Suspect]
     Indication: PARKINSON'S DISEASE
     Dosage: SEE IMAGE, ORAL
     Route: 048
     Dates: start: 20030724, end: 20040828
  2. CABERGOLINE [Suspect]
     Indication: PARKINSON'S DISEASE
     Dosage: SEE IMAGE, ORAL
     Route: 048
     Dates: start: 20000905
  3. CABERGOLINE [Suspect]
     Indication: PARKINSON'S DISEASE
     Dosage: SEE IMAGE, ORAL
     Route: 048
     Dates: start: 20000912
  4. CABERGOLINE [Suspect]
     Indication: PARKINSON'S DISEASE
     Dosage: SEE IMAGE, ORAL
     Route: 048
     Dates: start: 20000919
  5. CABERGOLINE [Suspect]
     Indication: PARKINSON'S DISEASE
     Dosage: SEE IMAGE, ORAL
     Route: 048
     Dates: start: 20000926
  6. CABERGOLINE [Suspect]
     Indication: PARKINSON'S DISEASE
     Dosage: SEE IMAGE, ORAL
     Route: 048
     Dates: start: 20010917
  7. NEO DOPASTON [Concomitant]
  8. SELEGILINE HYDROCHLORIDE [Concomitant]
  9. DOPS (DROXIDOPA) [Concomitant]
  10. MUCODYNE [Concomitant]
  11. ALOSENN (SENNA FRUIT, SENNA LEAF, RUBIA ROOT TINCTURE, ACHILLEA, TARAX [Concomitant]

REACTIONS (7)
  - EATING DISORDER [None]
  - HALLUCINATION [None]
  - HYPOXIA [None]
  - INTERSTITIAL LUNG DISEASE [None]
  - PLEURAL EFFUSION [None]
  - PNEUMONIA ASPIRATION [None]
  - STAPHYLOCOCCAL INFECTION [None]
